FAERS Safety Report 25060532 (Version 1)
Quarter: 2025Q1

REPORT INFORMATION
  Report Type: Spontaneous
  Country: US (occurrence: US)
  Receive Date: 20250310
  Receipt Date: 20250310
  Transmission Date: 20250409
  Serious: Yes (Other)
  Sender: AMGEN
  Company Number: US-AMGEN-USASP2025045896

PATIENT
  Age: 49 Year
  Sex: Female

DRUGS (5)
  1. PREDNISONE [Suspect]
     Active Substance: PREDNISONE
     Indication: Herpes zoster oticus
     Route: 065
  2. ACYCLOVIR [Concomitant]
     Active Substance: ACYCLOVIR
     Indication: Herpes zoster oticus
     Dosage: 550 MILLIGRAM, Q8H
     Route: 040
  3. VALACYCLOVIR [Concomitant]
     Active Substance: VALACYCLOVIR HYDROCHLORIDE
     Indication: Herpes zoster oticus
     Route: 048
  4. IBUPROFEN [Concomitant]
     Active Substance: IBUPROFEN
     Indication: Ear pain
     Dosage: 800 MILLIGRAM, TID
     Route: 065
  5. KETOTIFEN [Concomitant]
     Active Substance: KETOTIFEN
     Route: 065

REACTIONS (6)
  - Paralytic lagophthalmos [Unknown]
  - Trigeminal neuralgia [Unknown]
  - Ear discomfort [Unknown]
  - Motor dysfunction [Unknown]
  - Sensory loss [Unknown]
  - Off label use [Unknown]
